FAERS Safety Report 7819266-0 (Version None)
Quarter: 2011Q4

REPORT INFORMATION
  Report Type: 
  Country: None (occurrence: None)
  Receive Date: 20111018
  Receipt Date: 20101027
  Transmission Date: 20120403
  Serious: No
  Sender: FDA-Public Use
  Company Number: US-ASTRAZENECA-2010SE51505

PATIENT
  Age: 64 Year
  Sex: Female

DRUGS (8)
  1. OMEPRAZOLE [Concomitant]
  2. PROAIR HFA [Concomitant]
  3. ALLEGRA D 24 HOUR [Concomitant]
  4. SYMBICORT [Suspect]
     Dosage: 160/4.5 TWO PUFFS TWO TIMES A DAY - TAKEN DOSE
     Route: 055
  5. PULMICORT [Suspect]
     Indication: CHRONIC OBSTRUCTIVE PULMONARY DISEASE
     Route: 055
  6. FLOVENT [Concomitant]
  7. ROBITUSSIN DM [Concomitant]
  8. SYMBICORT [Suspect]
     Indication: CHRONIC OBSTRUCTIVE PULMONARY DISEASE
     Dosage: 160/4.5 ONE PUFF TWO TIMES A DAY - PRESCRIBED DOSE
     Route: 055

REACTIONS (3)
  - VITREOUS FLOATERS [None]
  - DIZZINESS [None]
  - INCORRECT DOSE ADMINISTERED [None]
